FAERS Safety Report 8686637 (Version 3)
Quarter: 2013Q4

REPORT INFORMATION
  Report Type: Spontaneous
  Country: TR (occurrence: TR)
  Receive Date: 20120727
  Receipt Date: 20131030
  Transmission Date: 20140711
  Serious: Yes (Other)
  Sender: FDA-Public Use
  Company Number: TR-AMGEN-TURSP2012004732

PATIENT
  Age: 48 Year
  Sex: Female

DRUGS (2)
  1. ENBREL [Suspect]
     Indication: PSORIASIS
     Dosage: 50 MG, WEEKLY
     Route: 058
     Dates: start: 20110421, end: 20120518
  2. ENBREL [Suspect]
     Dosage: 50 MG, QWK
     Route: 058
     Dates: end: 201309

REACTIONS (2)
  - Calculus bladder [Not Recovered/Not Resolved]
  - Drug ineffective [Recovered/Resolved]
